FAERS Safety Report 4331592-9 (Version None)
Quarter: 2004Q2

REPORT INFORMATION
  Report Type: 
  Country: None (occurrence: None)
  Receive Date: 20040402
  Receipt Date: 20040323
  Transmission Date: 20050107
  Serious: Yes (Death, Hospitalization)
  Sender: FDA-Public Use
  Company Number: US-MERCK-0403USA02134

PATIENT

DRUGS (2)
  1. STROMECTOL [Suspect]
     Indication: STRONGYLOIDIASIS
     Route: 048
  2. MINTEZOL [Suspect]
     Indication: STRONGYLOIDIASIS
     Route: 048

REACTIONS (8)
  - DISEASE PROGRESSION [None]
  - DISEASE RECURRENCE [None]
  - INFECTION IN AN IMMUNOCOMPROMISED HOST [None]
  - LUNG DISORDER [None]
  - PNEUMONITIS [None]
  - RESPIRATORY FAILURE [None]
  - STRONGYLOIDIASIS [None]
  - THERAPY NON-RESPONDER [None]
